FAERS Safety Report 9421994 (Version 3)
Quarter: 2014Q2

REPORT INFORMATION
  Report Type: Spontaneous
  Country: US (occurrence: US)
  Receive Date: 20130726
  Receipt Date: 20140407
  Transmission Date: 20141212
  Serious: Yes (Life-Threatening, Hospitalization)
  Sender: FDA-Public Use
  Company Number: US-BAYER-2013-089309

PATIENT
  Age: 24 Year
  Sex: Female
  Weight: 77.1 kg

DRUGS (6)
  1. YAZ [Suspect]
  2. YASMIN [Suspect]
     Dosage: UNK
     Dates: start: 20110315, end: 20110727
  3. SAFYRAL [Suspect]
     Dosage: UNK
     Dates: start: 20110316, end: 20110516
  4. SAFYRAL [Suspect]
     Dosage: UNK
     Dates: start: 201107
  5. VITAMIN C [Concomitant]
  6. ZARAH [Concomitant]
     Dosage: UNK
     Dates: start: 20110517, end: 20110705

REACTIONS (7)
  - Pulmonary embolism [None]
  - Deep vein thrombosis [None]
  - Injury [None]
  - Pain [None]
  - Anxiety [None]
  - Deformity [None]
  - General physical health deterioration [None]
